FAERS Safety Report 26199717 (Version 1)
Quarter: 2025Q4

REPORT INFORMATION
  Report Type: Other
  Country: SA (occurrence: SA)
  Receive Date: 20251225
  Receipt Date: 20251225
  Transmission Date: 20260117
  Serious: Yes (Hospitalization, Other)
  Sender: ANI
  Company Number: SA-ANIPHARMA-035593

PATIENT
  Sex: Male

DRUGS (2)
  1. BACLOFEN [Suspect]
     Active Substance: BACLOFEN
     Indication: Suicide attempt
  2. AMLODIPINE [Concomitant]
     Active Substance: AMLODIPINE BESYLATE
     Indication: Suicide attempt

REACTIONS (3)
  - Cardiogenic shock [Recovering/Resolving]
  - Brain death [Recovering/Resolving]
  - Overdose [Unknown]
